FAERS Safety Report 5696479-8 (Version None)
Quarter: 2008Q2

REPORT INFORMATION
  Report Type: 
  Country: None (occurrence: None)
  Receive Date: 20080408
  Receipt Date: 20080310
  Transmission Date: 20081010
  Serious: No
  Sender: FDA-Public Use
  Company Number: US-BOEHRINGER INGELHEIM GMBH, GERMANY-2008-BP-03635BP

PATIENT
  Sex: Male

DRUGS (6)
  1. SPIRIVA [Suspect]
     Indication: CHRONIC OBSTRUCTIVE PULMONARY DISEASE
     Route: 055
     Dates: start: 20080101
  2. COUMADIN [Concomitant]
  3. LOPRESSOR [Concomitant]
  4. METOPROLOL TARTRATE [Concomitant]
  5. NORVASC [Concomitant]
  6. MAGNESIUM [Concomitant]

REACTIONS (2)
  - CONDITION AGGRAVATED [None]
  - DRUG INEFFECTIVE [None]
